FAERS Safety Report 7755177-7 (Version None)
Quarter: 2011Q3

REPORT INFORMATION
  Report Type: 
  Country: None (occurrence: None)
  Receive Date: 20110916
  Receipt Date: 20110715
  Transmission Date: 20111222
  Serious: No
  Sender: FDA-Public Use
  Company Number: US-GLAXOSMITHKLINE-A0924403A

PATIENT
  Sex: Female

DRUGS (3)
  1. IMMUNE GLOBULIN INTRAVENOUS (HUMAN) [Concomitant]
     Indication: LYMPHOPROLIFERATIVE DISORDER
     Dates: start: 20101027, end: 20101028
  2. PROMACTA [Suspect]
     Indication: PRODUCT USED FOR UNKNOWN INDICATION
     Dosage: 75MG PER DAY
     Route: 048
     Dates: start: 20110116, end: 20110414
  3. CORTICOSTEROIDS [Concomitant]
     Indication: LYMPHOPROLIFERATIVE DISORDER
     Dates: start: 20101027, end: 20101031

REACTIONS (1)
  - DRUG INEFFECTIVE [None]
